FAERS Safety Report 8183197-X (Version None)
Quarter: 2012Q1

REPORT INFORMATION
  Report Type: 
  Country: None (occurrence: None)
  Receive Date: 20120305
  Receipt Date: 20120221
  Transmission Date: 20120608
  Serious: Yes (Life-Threatening)
  Sender: FDA-Public Use
  Company Number: JP-ASTELLAS-2012US002326

PATIENT
  Age: 80 Year
  Sex: Female

DRUGS (1)
  1. AMBISOME [Suspect]
     Indication: FEBRILE NEUTROPENIA
     Dosage: 100 MG, UID/QD
     Route: 065
     Dates: start: 20110707, end: 20110728

REACTIONS (3)
  - SHOCK [None]
  - CONVULSION [None]
  - HYPOKALAEMIA [None]
